FAERS Safety Report 5696205-2 (Version None)
Quarter: 2008Q2

REPORT INFORMATION
  Report Type: 
  Country: None (occurrence: None)
  Receive Date: 20080404
  Receipt Date: 20080404
  Transmission Date: 20081010
  Serious: Yes (Death)
  Sender: FDA-Public Use
  Company Number: None

PATIENT
  Age: 84 Year
  Sex: Female
  Weight: 60.8 kg

DRUGS (2)
  1. COUMADIN [Suspect]
     Indication: ATRIAL FIBRILLATION
     Dosage: 10 MG MON, WED, FRI PO
     Route: 048
     Dates: start: 20010101, end: 20080331
  2. COUMADIN [Suspect]
     Dosage: 15 MG TUES, THURS, SAT, PO
     Route: 048

REACTIONS (4)
  - FALL [None]
  - HEAD INJURY [None]
  - INTERNATIONAL NORMALISED RATIO DECREASED [None]
  - SUBDURAL HAEMATOMA [None]
